FAERS Safety Report 9851591 (Version 1)
Quarter: 2014Q1

REPORT INFORMATION
  Report Type: Spontaneous
  Country: US (occurrence: US)
  Receive Date: 20140129
  Receipt Date: 20140129
  Transmission Date: 20141002
  Serious: No
  Sender: FDA-Public Use
  Company Number: US-BIOGENIDEC-2014BI006973

PATIENT
  Age: 65 Year
  Sex: Female
  Weight: 88 kg

DRUGS (5)
  1. TECFIDERA [Suspect]
     Indication: MULTIPLE SCLEROSIS
     Route: 048
     Dates: start: 20140101, end: 20140107
  2. TECFIDERA [Suspect]
     Indication: MULTIPLE SCLEROSIS
     Route: 048
     Dates: start: 20140108, end: 20140112
  3. ONDANSETRON [Concomitant]
  4. DILTIAZEM [Concomitant]
  5. LANSOPRAZOLE [Concomitant]

REACTIONS (5)
  - Influenza [Unknown]
  - Hypophagia [Not Recovered/Not Resolved]
  - Dehydration [Not Recovered/Not Resolved]
  - Nausea [Not Recovered/Not Resolved]
  - Vomiting [Not Recovered/Not Resolved]
